FAERS Safety Report 19813724 (Version 1)
Quarter: 2021Q3

REPORT INFORMATION
  Report Type: Other
  Country: US (occurrence: US)
  Receive Date: 20210909
  Receipt Date: 20210909
  Transmission Date: 20211014
  Serious: No
  Sender: FDA-Public Use
  Company Number: US-APOTEX-2021AP042399

PATIENT
  Sex: Male

DRUGS (2)
  1. FLUTICASONE. [Suspect]
     Active Substance: FLUTICASONE
     Indication: ANTIINFLAMMATORY THERAPY
     Dosage: 50 MICROGRAM, BID, ONE SPRAY IN THE LEFT NOSTRIL
     Route: 045
     Dates: start: 20171020
  2. FLUTICASONE. [Suspect]
     Active Substance: FLUTICASONE
     Indication: SEASONAL ALLERGY

REACTIONS (4)
  - Recalled product administered [Unknown]
  - Product contamination physical [Unknown]
  - Rhinalgia [Unknown]
  - Epistaxis [Unknown]

NARRATIVE: CASE EVENT DATE: 201901
